FAERS Safety Report 5089573-6 (Version None)
Quarter: 2006Q3

REPORT INFORMATION
  Report Type: 
  Country: None (occurrence: None)
  Receive Date: 20060727
  Receipt Date: 20060517
  Transmission Date: 20061208
  Serious: Yes (Other)
  Sender: FDA-Public Use
  Company Number: 2006065151

PATIENT
  Age: 42 Year
  Sex: Female
  Weight: 99.7913 kg

DRUGS (14)
  1. LYRICA [Suspect]
     Indication: DIABETIC NEUROPATHY
     Dosage: 150 (50 MG, 3 IN 1 D)
     Route: 065
     Dates: start: 20060101
  2. TOPAMAX [Concomitant]
  3. AVANDIA [Concomitant]
  4. WELLBUTRIN [Concomitant]
  5. LEXAPRO [Concomitant]
  6. DIOVAN [Concomitant]
  7. TRICOR [Concomitant]
  8. ZOCOR [Concomitant]
  9. ACIPHEX [Concomitant]
  10. LASIX [Concomitant]
  11. COPAXONE [Concomitant]
  12. ALLEGRA [Concomitant]
  13. ANTIHYPERTENSIVES (ANTIHYPERTENSIVES) [Concomitant]
  14. TAMOXIFEN CITRATE [Concomitant]

REACTIONS (15)
  - ABDOMINAL DISTENSION [None]
  - BACK PAIN [None]
  - CHEST PAIN [None]
  - DRUG INEFFECTIVE [None]
  - INCORRECT DOSE ADMINISTERED [None]
  - INSOMNIA [None]
  - JOINT INJURY [None]
  - JOINT SWELLING [None]
  - MEMORY IMPAIRMENT [None]
  - OEDEMA PERIPHERAL [None]
  - PAIN IN EXTREMITY [None]
  - THINKING ABNORMAL [None]
  - URINARY RETENTION [None]
  - URINARY TRACT INFECTION [None]
  - VISUAL DISTURBANCE [None]
